FAERS Safety Report 7564874-8 (Version None)
Quarter: 2011Q2

REPORT INFORMATION
  Report Type: 
  Country: None (occurrence: None)
  Receive Date: 20110622
  Receipt Date: 20110124
  Transmission Date: 20111010
  Serious: Yes (Death)
  Sender: FDA-Public Use
  Company Number: US-MYLANLABS-2011S1001549

PATIENT
  Age: 76 Year
  Sex: Female

DRUGS (4)
  1. EFFEXOR [Concomitant]
  2. LORAZEPAM [Concomitant]
  3. CLOZAPINE [Suspect]
     Indication: SCHIZOPHRENIA, PARANOID TYPE
     Route: 048
     Dates: end: 20101117
  4. RISPERDAL [Concomitant]

REACTIONS (1)
  - SQUAMOUS CELL CARCINOMA [None]
